FAERS Safety Report 8154681-X (Version None)
Quarter: 2012Q1

REPORT INFORMATION
  Report Type: 
  Country: None (occurrence: None)
  Receive Date: 20120221
  Receipt Date: 20120216
  Transmission Date: 20120608
  Serious: Yes (Other)
  Sender: FDA-Public Use
  Company Number: CHPA2012ZA003135

PATIENT
  Sex: Male

DRUGS (4)
  1. ZETOMAX [Concomitant]
     Dosage: 5 MG DAILY
  2. GLUCOPHAGE [Concomitant]
     Dosage: 1000 MG, BID
  3. EXCEDRIN (MIGRAINE) [Suspect]
     Indication: HEADACHE
     Dosage: UNK DF, QD
     Route: 048
  4. GLIMEPIRIDE [Concomitant]
     Dosage: 4 MG DAILY

REACTIONS (4)
  - SENSATION OF FOREIGN BODY [None]
  - ASTHENIA [None]
  - FATIGUE [None]
  - DYSPHAGIA [None]
